FAERS Safety Report 13764248 (Version 11)
Quarter: 2019Q1

REPORT INFORMATION
  Report Type: Report from Study
  Country: JP (occurrence: JP)
  Receive Date: 20170718
  Receipt Date: 20190204
  Transmission Date: 20190417
  Serious: Yes (Life-Threatening, Hospitalization)
  Sender: FDA-Public Use
  Company Number: JP-PFIZER INC-2017116252

PATIENT
  Age: 80 Year
  Sex: Male

DRUGS (13)
  1. RABEPRAZOLE SODIUM. [Suspect]
     Active Substance: RABEPRAZOLE SODIUM
  2. BISONO [Suspect]
     Active Substance: BISOPROLOL
  3. CALFINA [Concomitant]
     Active Substance: ALFACALCIDOL
     Indication: PROPHYLAXIS
  4. NAIXAN [Concomitant]
     Active Substance: NAPROXEN SODIUM
  5. XELJANZ [Suspect]
     Active Substance: TOFACITINIB CITRATE
     Indication: RHEUMATOID ARTHRITIS
     Dosage: 5 MG, 2X/DAY
     Route: 048
     Dates: start: 20160122, end: 20161110
  6. PREDNISOLONE. [Concomitant]
     Active Substance: PREDNISOLONE
     Dosage: 2.5 MG, DAILY
     Route: 048
     Dates: start: 201405, end: 20161118
  7. LYRICA [Concomitant]
     Active Substance: PREGABALIN
  8. ADETPHOS [Concomitant]
     Active Substance: ADENOSINE TRIPHOSPHATE
     Dosage: UNK
     Route: 048
     Dates: start: 20161006
  9. METHYCOBAL [Concomitant]
     Active Substance: METHYLCOBALAMIN
     Dosage: UNK
     Route: 048
     Dates: start: 20161006
  10. LEVETIRACETAM. [Suspect]
     Active Substance: LEVETIRACETAM
  11. AZULFIDINE EN-TABS [Concomitant]
     Active Substance: SULFASALAZINE
     Indication: RHEUMATOID ARTHRITIS
     Dosage: 1 G, UNK
     Dates: start: 201404, end: 20161118
  12. BAKTAR [Concomitant]
     Active Substance: SULFAMETHOXAZOLE\TRIMETHOPRIM
     Indication: ANTIFUNGAL PROPHYLAXIS
     Dosage: UNK
     Dates: end: 20161117
  13. TEPRENONE [Suspect]
     Active Substance: TEPRENONE

REACTIONS (2)
  - Aortic dissection [Recovered/Resolved with Sequelae]
  - Rash [Recovered/Resolved]

NARRATIVE: CASE EVENT DATE: 20161110
